FAERS Safety Report 5600599-3 (Version None)
Quarter: 2008Q1

REPORT INFORMATION
  Report Type: 
  Country: None (occurrence: None)
  Receive Date: 20080111
  Receipt Date: 20071109
  Transmission Date: 20080703
  Serious: Yes (Other)
  Sender: FDA-Public Use
  Company Number: HQWYE289407JUN04

PATIENT
  Age: 61 Year
  Sex: Female

DRUGS (5)
  1. PREMPRO (CONJUGATED ESTROGENS/MEDROXYPROGESTEREONE ACETATE, TABLET, UN [Suspect]
     Indication: HORMONE REPLACEMENT THERAPY
  2. CYCRIN [Suspect]
     Indication: HORMONE REPLACEMENT THERAPY
  3. PREMARIN [Suspect]
     Indication: HORMONE REPLACEMENT THERAPY
  4. PROVERA [Suspect]
     Indication: HORMONE REPLACEMENT THERAPY
  5. TAMOXIFEN CITRATE [Suspect]

REACTIONS (3)
  - BREAST CANCER [None]
  - HEPATIC NEOPLASM [None]
  - OVARIAN CYST [None]
